FAERS Safety Report 10083229 (Version 3)
Quarter: 2014Q2

REPORT INFORMATION
  Report Type: Spontaneous
  Country: JP (occurrence: JP)
  Receive Date: 20140417
  Receipt Date: 20140420
  Transmission Date: 20141212
  Serious: Yes (Hospitalization)
  Sender: FDA-Public Use
  Company Number: JP-009507513-1403JPN010101

PATIENT
  Age: 66 Year
  Sex: Male
  Weight: 62 kg

DRUGS (3)
  1. ZETIA TABLETS 10MG [Suspect]
     Indication: HYPERLIPIDAEMIA
     Dosage: 10 MG, QD
     Route: 048
     Dates: start: 20130729, end: 20140318
  2. BEZATOL SR [Suspect]
     Indication: HYPERLIPIDAEMIA
     Dosage: 200 MG, BID
     Route: 048
     Dates: start: 20130511, end: 20140318
  3. NESINA [Suspect]
     Indication: DIABETES MELLITUS
     Dosage: 12.5 MG, QD
     Route: 048
     Dates: start: 20120929, end: 20140318

REACTIONS (1)
  - Interstitial lung disease [Recovered/Resolved]
